FAERS Safety Report 8484133-9 (Version None)
Quarter: 2012Q3

REPORT INFORMATION
  Report Type: 
  Country: None (occurrence: None)
  Receive Date: 20120703
  Receipt Date: 20120625
  Transmission Date: 20120928
  Serious: Yes (Hospitalization)
  Sender: FDA-Public Use
  Company Number: US-BAYER-2011-075414

PATIENT
  Age: 52 Year
  Sex: Female

DRUGS (24)
  1. SULFACETAMIDE SODIUM [Concomitant]
     Dosage: UNK UNK, OM
     Route: 061
  2. LEVAQUIN [Concomitant]
     Dosage: 500 MG, QD
     Route: 048
  3. XANAX [Concomitant]
     Dosage: 0.5MG TAKE 4 TO 5 TABLETS A DAY WHEN NEEDED
  4. PROZAC [Concomitant]
     Dosage: 40 MG, QD
     Route: 048
  5. YASMIN [Suspect]
  6. XANAX [Concomitant]
     Dosage: 0.5 MG TABLET TAKE 1 TABLET 4 TIMES A DAY
  7. HYDROCODONE BITARTRATE + ACETAMINOPHEN [Concomitant]
     Indication: PAIN
     Dosage: 1 TABLET EVERY 4 HOURS WHEN NEEDED
     Route: 048
  8. NASONEX [Concomitant]
     Dosage: 59 MCG 2 SPRAYS ONCE
     Route: 045
  9. NEURONTIN [Concomitant]
     Dosage: 600 MG, TID
     Route: 048
  10. ACYCLOVIR [Concomitant]
     Dosage: 400 MG, BID
  11. VALTREX [Concomitant]
     Dosage: 500 MG, BID
  12. CIPROFLOXACIN HCL [Concomitant]
     Dosage: 250 MG, BID
  13. BIOTIN [Concomitant]
  14. 2-DEOXY-D-GLUCOSE 0.2% [Concomitant]
     Route: 061
  15. ZOVIRAX [Concomitant]
     Route: 061
  16. LEVOXYL [Concomitant]
     Dosage: 75 ?G, QD
     Route: 048
  17. LEVOXYL [Concomitant]
     Dosage: 100 ?G, QD
     Route: 048
  18. PROZAC [Concomitant]
     Dosage: 10 MG, TID
  19. YAZ [Suspect]
     Indication: MENOPAUSE
  20. STRATTERA [Concomitant]
     Dosage: 25 MG, QD
  21. XANAX [Concomitant]
     Dosage: 0.5 MG TABLET TAKE 1 TABLET 6 TIMES DAILY WHEN NEEDED
  22. NORITATE [Concomitant]
     Dosage: APPLY IN THE EVENING
     Route: 061
  23. KETOROLAC TROMETHAMINE [Concomitant]
     Indication: PAIN
     Dosage: 10 MG TAKE 3 TABLETS EVERY 6 HOURS AS NEEDED
  24. ZETIA [Concomitant]
     Dosage: 10 MG, QD
     Route: 048

REACTIONS (1)
  - DEEP VEIN THROMBOSIS [None]
